FAERS Safety Report 4432256-3 (Version None)
Quarter: 2004Q3

REPORT INFORMATION
  Report Type: 
  Country: None (occurrence: None)
  Receive Date: 20040819
  Receipt Date: 20040809
  Transmission Date: 20050211
  Serious: Yes (Hospitalization)
  Sender: FDA-Public Use
  Company Number: 20572

PATIENT
  Sex: Male

DRUGS (3)
  1. NIASPAN [Suspect]
  2. ASPIRIN [Concomitant]
  3. HIGHLY ACTIVE ANTIRETRORIRAL THERAPY [Concomitant]

REACTIONS (1)
  - PNEUMONIA [None]
